FAERS Safety Report 6065805-2 (Version None)
Quarter: 2009Q1

REPORT INFORMATION
  Report Type: 
  Country: None (occurrence: None)
  Receive Date: 20090205
  Receipt Date: 20090105
  Transmission Date: 20090719
  Serious: No
  Sender: FDA-Public Use
  Company Number: US-BAYER-200910210NA

PATIENT
  Sex: Male

DRUGS (3)
  1. CIPRO [Suspect]
     Indication: URINARY TRACT INFECTION
     Dates: start: 20081201
  2. CIPRO [Suspect]
     Dates: start: 20080101
  3. LEVAQUIN [Suspect]
     Dates: start: 20081201

REACTIONS (1)
  - URINARY TRACT INFECTION [None]
